FAERS Safety Report 12076759 (Version 1)
Quarter: 2016Q1

REPORT INFORMATION
  Report Type: Spontaneous
  Country: US (occurrence: US)
  Receive Date: 20160215
  Receipt Date: 20160215
  Transmission Date: 20160526
  Serious: No
  Sender: FDA-Public Use
  Company Number: US-009507513-1602USA005204

PATIENT
  Sex: Female

DRUGS (1)
  1. NEXPLANON [Suspect]
     Active Substance: ETONOGESTREL
     Indication: CONTRACEPTION
     Dosage: 68 MG/SINGLE INSERTION
     Route: 059

REACTIONS (3)
  - Device dislocation [Recovered/Resolved]
  - Haemorrhage [Unknown]
  - Complication associated with device [Recovered/Resolved]
